FAERS Safety Report 10168801 (Version 1)
Quarter: 2014Q2

REPORT INFORMATION
  Report Type: Spontaneous
  Country: US (occurrence: None)
  Receive Date: 20140509
  Receipt Date: 20140509
  Transmission Date: 20141212
  Serious: Yes (Death, Hospitalization)
  Sender: FDA-Public Use
  Company Number: UTC-048149

PATIENT
  Age: 68 Year
  Sex: Female

DRUGS (3)
  1. REMODULIN (2.5 MILLIGRAM/MILLILITERS, INJECTION FOR INFUSION) (TREPROSTINIL SODIUM)) [Suspect]
     Indication: PULMONARY ARTERIAL HYPERTENSION
     Dosage: (0.026 UG/KG, 1 IN 1 MIN)
     Route: 041
     Dates: start: 20110711
  2. TRACLEER (BOSENTAN) [Concomitant]
  3. WARFARIN (WARFARIN) [Concomitant]

REACTIONS (1)
  - Death [None]
